FAERS Safety Report 4815588-6 (Version None)
Quarter: 2005Q4

REPORT INFORMATION
  Report Type: 
  Country: None (occurrence: None)
  Receive Date: 20051031
  Receipt Date: 20050902
  Transmission Date: 20060501
  Serious: Yes (Death)
  Sender: FDA-Public Use
  Company Number: US-BRISTOL-MYERS SQUIBB COMPANY-13100359

PATIENT
  Sex: Female

DRUGS (1)
  1. HYDREA [Suspect]

REACTIONS (1)
  - ACUTE MYELOID LEUKAEMIA [None]
